FAERS Safety Report 21650360 (Version 3)
Quarter: 2023Q1

REPORT INFORMATION
  Report Type: Spontaneous
  Country: US (occurrence: US)
  Receive Date: 20221128
  Receipt Date: 20230322
  Transmission Date: 20230417
  Serious: No
  Sender: FDA-Public Use
  Company Number: US-PFIZER INC-202201319462

PATIENT
  Age: 71 Year
  Sex: Female
  Weight: 47.62 kg

DRUGS (15)
  1. METOPROLOL TARTRATE [Suspect]
     Active Substance: METOPROLOL TARTRATE
     Indication: Hypotension
     Dosage: UNK
     Dates: start: 202211
  2. METOPROLOL TARTRATE [Suspect]
     Active Substance: METOPROLOL TARTRATE
     Indication: Atrial fibrillation
  3. METOPROLOL TARTRATE [Suspect]
     Active Substance: METOPROLOL TARTRATE
     Indication: Tachycardia
  4. SASANLIMAB [Concomitant]
     Active Substance: SASANLIMAB
     Indication: Squamous cell carcinoma of head and neck
     Dosage: 225 MG (RECEIVED 07 TOTAL DOSES AND COMPLETED C (CYCLE) 7 D)
     Route: 058
     Dates: start: 20220330, end: 20220916
  5. SASANLIMAB [Concomitant]
     Active Substance: SASANLIMAB
     Dosage: 3X75MG/1.5ML (225MG/4.5ML)
     Route: 058
     Dates: start: 20220916
  6. SGN-TGT [Concomitant]
     Active Substance: SGN-TGT
     Indication: Squamous cell carcinoma of head and neck
     Dosage: 150 MG, CYCLIC (150 MG ON DAY 1 OF EACH 21 DAYS CYCLE)
     Route: 042
     Dates: start: 20220330, end: 20220916
  7. VITAMINS [Concomitant]
     Active Substance: VITAMINS
     Dosage: UNK
     Dates: start: 2021
  8. IBUPROFEN [Concomitant]
     Active Substance: IBUPROFEN
     Dosage: UNK
  9. HYDROCORTISONE [Concomitant]
     Active Substance: HYDROCORTISONE
     Dosage: UNK
     Dates: start: 20220601
  10. CALCIUM [Concomitant]
     Active Substance: CALCIUM
     Dosage: UNK
     Dates: start: 20220815
  11. CHOLECALCIFEROL [Concomitant]
     Active Substance: CHOLECALCIFEROL
     Dosage: UNK
     Dates: start: 20220815
  12. PREDNISONE [Concomitant]
     Active Substance: PREDNISONE
     Dosage: 60 MG
     Dates: start: 20220918
  13. FLUOCINOLONE [Concomitant]
     Active Substance: FLUOCINOLONE
     Dosage: UNK
     Dates: start: 20221007
  14. NEURONTIN [Concomitant]
     Active Substance: GABAPENTIN
     Dosage: UNK
     Dates: start: 20221007
  15. TACROLIMUS [Concomitant]
     Active Substance: TACROLIMUS
     Dosage: UNK
     Dates: start: 20221007

REACTIONS (2)
  - Drug ineffective for unapproved indication [Unknown]
  - Off label use [Unknown]

NARRATIVE: CASE EVENT DATE: 20221101
